FAERS Safety Report 4523875-4 (Version None)
Quarter: 2004Q4

REPORT INFORMATION
  Report Type: 
  Country: None (occurrence: None)
  Receive Date: 20041209
  Receipt Date: 20041209
  Transmission Date: 20050328
  Serious: Yes (Life-Threatening)
  Sender: FDA-Public Use
  Company Number: None

PATIENT
  Age: 51 Year
  Sex: Male
  Weight: 70 kg

DRUGS (1)
  1. NEULASTA [Suspect]
     Dosage: ONCE

REACTIONS (4)
  - ABDOMINAL PAIN UPPER [None]
  - DRUG LEVEL INCREASED [None]
  - INFECTION [None]
  - SPLENIC RUPTURE [None]
